FAERS Safety Report 8457367-7 (Version None)
Quarter: 2012Q2

REPORT INFORMATION
  Report Type: 
  Country: None (occurrence: None)
  Receive Date: 20120621
  Receipt Date: 20120618
  Transmission Date: 20120825
  Serious: No
  Sender: FDA-Public Use
  Company Number: US-PFIZER INC-2012147732

PATIENT
  Sex: Male

DRUGS (3)
  1. TOVIAZ [Suspect]
     Dosage: 4 MG, 1X/DAY
     Dates: start: 20120501, end: 20120501
  2. TOVIAZ [Suspect]
     Dosage: 8 MG, 1X/DAY
     Dates: start: 20120501
  3. TOVIAZ [Suspect]
     Dosage: 8 MG, 1X/DAY
     Dates: start: 20120501, end: 20120501

REACTIONS (1)
  - DRUG INEFFECTIVE [None]
